FAERS Safety Report 22270517 (Version 1)
Quarter: 2023Q2

REPORT INFORMATION
  Report Type: Spontaneous
  Country: IN (occurrence: None)
  Receive Date: 20230429
  Receipt Date: 20230429
  Transmission Date: 20230722
  Serious: Yes (Hospitalization)
  Sender: FDA-Public Use
  Company Number: None

PATIENT
  Age: 22 Year
  Sex: Male
  Weight: 59 kg

DRUGS (5)
  1. ATOMOXETINE [Suspect]
     Active Substance: ATOMOXETINE
  2. BUPROPION [Suspect]
     Active Substance: BUPROPION
  3. Methylphenidate hydrochloride 40mg [Concomitant]
  4. Multivitamin tablets for one week [Concomitant]
  5. Biotin tablets [Concomitant]

REACTIONS (7)
  - Tremor [None]
  - Drug ineffective [None]
  - Palpitations [None]
  - Middle insomnia [None]
  - Feeling abnormal [None]
  - Blood pressure fluctuation [None]
  - Tachycardia [None]

NARRATIVE: CASE EVENT DATE: 20221114
